FAERS Safety Report 6896506-6 (Version None)
Quarter: 2010Q3

REPORT INFORMATION
  Report Type: 
  Country: None (occurrence: None)
  Receive Date: 20100802
  Receipt Date: 20090312
  Transmission Date: 20110219
  Serious: No
  Sender: FDA-Public Use
  Company Number: US-PFIZER INC-2009182916

PATIENT
  Sex: Female

DRUGS (1)
  1. NEURONTIN [Suspect]
     Dosage: 300 MG, 1X/DAY
     Dates: start: 20090101, end: 20090101

REACTIONS (2)
  - HYPERSENSITIVITY [None]
  - URTICARIA [None]
